FAERS Safety Report 7687131-8 (Version None)
Quarter: 2011Q3

REPORT INFORMATION
  Report Type: 
  Country: None (occurrence: None)
  Receive Date: 20110816
  Receipt Date: 20110808
  Transmission Date: 20111222
  Serious: Yes (Hospitalization, Other)
  Sender: FDA-Public Use
  Company Number: PHHY2011JP09438

PATIENT
  Sex: Male
  Weight: 63 kg

DRUGS (7)
  1. AFINITOR [Suspect]
     Indication: METASTATIC RENAL CELL CARCINOMA
     Dosage: 10 MG, DAILY
     Route: 048
     Dates: start: 20100712, end: 20100809
  2. SUNITINIB MALATE [Concomitant]
     Indication: METASTATIC RENAL CELL CARCINOMA
     Dosage: 37.5 MG, UNK
     Route: 048
     Dates: start: 20081021, end: 20101121
  3. AFINITOR [Suspect]
     Dosage: 5 MG, DAILY
     Route: 048
     Dates: start: 20100906
  4. RAMITALATE [Concomitant]
     Route: 048
  5. OMEPRAZOLE [Concomitant]
     Indication: METASTATIC RENAL CELL CARCINOMA
     Dosage: 20 MG, UNK
     Route: 048
     Dates: start: 20091126, end: 20100809
  6. NORVASC [Concomitant]
     Route: 048
  7. AMLODIPINE [Concomitant]
     Indication: METASTATIC RENAL CELL CARCINOMA
     Dosage: 7.5 MG, UNK
     Route: 048
     Dates: start: 20090309, end: 20100809

REACTIONS (2)
  - C-REACTIVE PROTEIN INCREASED [None]
  - HYPERGLYCAEMIA [None]
